FAERS Safety Report 4519037-7 (Version None)
Quarter: 2004Q4

REPORT INFORMATION
  Report Type: 
  Country: None (occurrence: None)
  Receive Date: 20041201
  Receipt Date: 20041124
  Transmission Date: 20050328
  Serious: Yes (Death)
  Sender: FDA-Public Use
  Company Number: 2004PK02003

PATIENT
  Age: 19 Year
  Sex: Male

DRUGS (1)
  1. SEROQUEL [Suspect]
     Dosage: 100 MG DAILY PO
     Route: 048

REACTIONS (1)
  - COMPLETED SUICIDE [None]
